FAERS Safety Report 12553028 (Version 2)
Quarter: 2016Q4

REPORT INFORMATION
  Report Type: Report from Study
  Country: US (occurrence: US)
  Receive Date: 20160713
  Receipt Date: 20161106
  Transmission Date: 20170207
  Serious: Yes (Death, Hospitalization, Other)
  Sender: FDA-Public Use
  Company Number: PHEH2016US017300

PATIENT
  Age: 68 Year
  Sex: Female

DRUGS (1)
  1. AFINITOR [Suspect]
     Active Substance: EVEROLIMUS
     Indication: ENDOMETRIAL CANCER METASTATIC
     Dosage: 10 MG, QD
     Route: 065
     Dates: start: 20160622, end: 20160830

REACTIONS (9)
  - Anaemia [Not Recovered/Not Resolved]
  - Endometrial cancer metastatic [Fatal]
  - Pulmonary embolism [Not Recovered/Not Resolved]
  - Pain [Fatal]
  - Haemorrhage [Fatal]
  - Malignant neoplasm progression [Unknown]
  - Deep vein thrombosis [Not Recovered/Not Resolved]
  - Abdominal pain [Unknown]
  - Oedema peripheral [Not Recovered/Not Resolved]

NARRATIVE: CASE EVENT DATE: 20160622
